FAERS Safety Report 16979433 (Version 2)
Quarter: 2020Q1

REPORT INFORMATION
  Report Type: Spontaneous
  Country: JP (occurrence: JP)
  Receive Date: 20191031
  Receipt Date: 20200103
  Transmission Date: 20200409
  Serious: Yes (Death)
  Sender: FDA-Public Use
  Company Number: JP-JNJFOC-20191039193

PATIENT
  Sex: Female
  Weight: 57.4 kg

DRUGS (2)
  1. XEPLION [Suspect]
     Active Substance: PALIPERIDONE PALMITATE
     Indication: SCHIZOPHRENIA
     Route: 030
     Dates: start: 20170316, end: 20190919
  2. ELOBIXIBAT HYDRATE [Concomitant]
     Active Substance: ELOBIXIBAT
     Indication: CONSTIPATION
     Route: 048
     Dates: start: 20190725, end: 20190926

REACTIONS (1)
  - Sudden death [Fatal]
